FAERS Safety Report 18460829 (Version 1)
Quarter: 2020Q4

REPORT INFORMATION
  Report Type: Spontaneous
  Country: DE (occurrence: DE)
  Receive Date: 20201104
  Receipt Date: 20201104
  Transmission Date: 20210114
  Serious: Yes (Hospitalization)
  Sender: FDA-Public Use
  Company Number: DE-ACCORD-207158

PATIENT
  Age: 67 Year
  Sex: Male

DRUGS (8)
  1. GEMCITABINE/GEMCITABINE HYDROCHLORIDE [Suspect]
     Active Substance: GEMCITABINE\GEMCITABINE HYDROCHLORIDE
     Indication: PRODUCT USED FOR UNKNOWN INDICATION
  2. LIXIANA [Concomitant]
     Active Substance: EDOXABAN TOSYLATE
     Dosage: 60 MG, 1-0-0-0, TABLET
  3. CALCIUM/COLECALCIFEROL [Concomitant]
     Active Substance: CALCIUM\CHOLECALCIFEROL
     Dosage: 600 0.01 MG, 1-0-0-0, EFFERVESCENT TABLETS
  4. METAMIZOLE SODIUM [Concomitant]
     Active Substance: METAMIZOLE SODIUM
     Dosage: 500 MG, AS REQUIRED, TABLET
  5. FUROSEMIDE. [Concomitant]
     Active Substance: FUROSEMIDE
     Dosage: 40 MG, 1-0-0-0, TABLET
  6. PANTOPRAZOLE [Concomitant]
     Active Substance: PANTOPRAZOLE
     Dosage: 40 MG, 1-0-0-0, TABLET
  7. SPIRONOLACTONE. [Concomitant]
     Active Substance: SPIRONOLACTONE
     Dosage: 50 MG, 1-0-0-0, TABLET
  8. PREDNISOLONE. [Suspect]
     Active Substance: PREDNISOLONE
     Indication: PRODUCT USED FOR UNKNOWN INDICATION
     Dosage: 10 MG, 0.5-0-0-0, TABLET

REACTIONS (3)
  - Pyrexia [Unknown]
  - Escherichia bacteraemia [Unknown]
  - Chills [Unknown]
